FAERS Safety Report 6298701-6 (Version None)
Quarter: 2009Q3

REPORT INFORMATION
  Report Type: 
  Country: None (occurrence: None)
  Receive Date: 20090806
  Receipt Date: 20070612
  Transmission Date: 20100115
  Serious: Yes (Other)
  Sender: FDA-Public Use
  Company Number: US-ASTRAZENECA-2006UW11437

PATIENT
  Age: 22591 Day
  Sex: Male
  Weight: 93 kg

DRUGS (7)
  1. SEROQUEL [Suspect]
     Indication: ANXIETY
     Route: 048
     Dates: start: 20030101
  2. SEROQUEL [Suspect]
     Dosage: 25 MG TO 50 MG
     Route: 048
     Dates: start: 20030801
  3. ASPIRIN [Concomitant]
     Dates: start: 20030710
  4. DOCUSATE [Concomitant]
     Dates: start: 20030710
  5. PROTONIX [Concomitant]
     Dosage: 40 MG/20 ML
     Route: 048
     Dates: start: 20060302
  6. PLAVIX [Concomitant]
     Route: 048
     Dates: start: 20060302
  7. ENOXAPARIN SODIUM [Concomitant]
     Dates: start: 20030710

REACTIONS (2)
  - DIABETES MELLITUS [None]
  - DIABETIC NEUROPATHY [None]
